FAERS Safety Report 5177498-7 (Version None)
Quarter: 2006Q4

REPORT INFORMATION
  Report Type: 
  Country: None (occurrence: None)
  Receive Date: 20061218
  Receipt Date: 20061016
  Transmission Date: 20070319
  Serious: Yes (Hospitalization)
  Sender: FDA-Public Use
  Company Number: FR-ELI_LILLY_AND_COMPANY-FR200610002683

PATIENT
  Age: 75 Year
  Sex: Female

DRUGS (4)
  1. CORTANCYL [Concomitant]
     Indication: RHEUMATOID ARTHRITIS
     Route: 048
     Dates: start: 20040101, end: 20061101
  2. ART 50 [Concomitant]
     Indication: OSTEOARTHRITIS
     Dosage: 1 D/F, DAILY (1/D)
     Route: 048
     Dates: start: 20060501
  3. FIXICAL VITAMINE D3 [Concomitant]
     Indication: OSTEOPOROSIS
     Route: 048
     Dates: start: 20040101
  4. FORTEO [Suspect]
     Indication: OSTEOPOROSIS
     Dosage: 20 UG, DAILY (1/D)
     Route: 058
     Dates: start: 20050810

REACTIONS (2)
  - CORONARY ARTERY DISEASE [None]
  - DYSPNOEA [None]
